FAERS Safety Report 8579223-6 (Version None)
Quarter: 2012Q3

REPORT INFORMATION
  Report Type: 
  Country: None (occurrence: None)
  Receive Date: 20120726
  Receipt Date: 20120709
  Transmission Date: 20120928
  Serious: Yes (Hospitalization)
  Sender: FDA-Public Use
  Company Number: VAL_00804_2012

PATIENT
  Sex: Female

DRUGS (14)
  1. PAMIDRONATE DISODIUIM [Concomitant]
  2. FUROSEMIDE [Concomitant]
  3. LANOXIN [Concomitant]
  4. TIOTROPIUM BROMIDE [Concomitant]
  5. RIFAXIMIN [Concomitant]
  6. METFORMIN HYDROCHLORIDE [Concomitant]
  7. LEVOTHYROXINE SODIUM [Concomitant]
  8. COUMADIN [Concomitant]
  9. CACIT VITAMINE D3 (CACIT VITAMINE D3-CALCIUM CARBONATE, CHOLECALCIFERO [Suspect]
     Indication: HYPOPARATHYROIDISM
     Dosage: 1 DF, QD, ORAL
     Route: 048
     Dates: start: 20120501, end: 20120622
  10. ATORVASTATIN [Concomitant]
  11. OMEPRAZOLE [Concomitant]
  12. ALLOPURINOL [Concomitant]
  13. ROCALTROL [Suspect]
     Indication: HYPOPARATHYROIDISM
     Dosage: 2 DF QD, ORAL
     Route: 048
     Dates: start: 20120501, end: 20120622
  14. NATECAL (NATECAL-CALCIUM CARBONATE) [Suspect]
     Indication: HYPOPARATHYROIDISM
     Dosage: 1 DF QD, ORAL
     Route: 048
     Dates: start: 20120501, end: 20120622

REACTIONS (4)
  - HYPERCALCAEMIA [None]
  - MALAISE [None]
  - TOXICITY TO VARIOUS AGENTS [None]
  - DECREASED APPETITE [None]
